FAERS Safety Report 12089703 (Version 3)
Quarter: 2016Q2

REPORT INFORMATION
  Report Type: Spontaneous
  Country: US (occurrence: US)
  Receive Date: 20160218
  Receipt Date: 20160427
  Transmission Date: 20160815
  Serious: Yes (Hospitalization)
  Sender: FDA-Public Use
  Company Number: US-PFIZER INC-2016083104

PATIENT
  Age: 67 Year
  Sex: Female

DRUGS (2)
  1. NEURONTIN [Suspect]
     Active Substance: GABAPENTIN
     Indication: NEUROPATHY PERIPHERAL
     Dosage: 300 MG, 3X/DAY
  2. LYRICA [Concomitant]
     Active Substance: PREGABALIN
     Dosage: 150 MG, UNK

REACTIONS (7)
  - Fall [Not Recovered/Not Resolved]
  - Drug hypersensitivity [Not Recovered/Not Resolved]
  - Arthropathy [Not Recovered/Not Resolved]
  - Speech disorder [Unknown]
  - Hypotension [Not Recovered/Not Resolved]
  - Product use issue [Unknown]
  - Contusion [Unknown]
